FAERS Safety Report 16121973 (Version 1)
Quarter: 2019Q2

REPORT INFORMATION
  Report Type: Spontaneous
  Country: US (occurrence: US)
  Receive Date: 20190326
  Receipt Date: 20190326
  Transmission Date: 20190711
  Serious: No
  Sender: FDA-Public Use
  Company Number: None

PATIENT
  Age: 71 Year
  Sex: Female
  Weight: 68.85 kg

DRUGS (2)
  1. VITAMIN D NOS [Concomitant]
     Active Substance: VITAMIN D NOS
  2. PROLIA [Suspect]
     Active Substance: DENOSUMAB
     Indication: BONE DENSITY ABNORMAL
     Dosage: ?          OTHER ROUTE:INFUSION INTO STOMACH?
     Dates: start: 20180315, end: 20190320

REACTIONS (4)
  - Jaw disorder [None]
  - Arthralgia [None]
  - Head discomfort [None]
  - Myalgia [None]

NARRATIVE: CASE EVENT DATE: 20180903
